FAERS Safety Report 15863523 (Version 2)
Quarter: 2019Q1

REPORT INFORMATION
  Report Type: Spontaneous
  Country: JP (occurrence: JP)
  Receive Date: 20190124
  Receipt Date: 20190208
  Transmission Date: 20190417
  Serious: Yes (Hospitalization)
  Sender: FDA-Public Use
  Company Number: JP-ASTRAZENECA-2018SF70959

PATIENT
  Age: 26006 Day
  Sex: Male
  Weight: 46 kg

DRUGS (1)
  1. IMFINZI [Suspect]
     Active Substance: DURVALUMAB
     Indication: NON-SMALL CELL LUNG CANCER
     Route: 041
     Dates: start: 20181129, end: 20181129

REACTIONS (1)
  - Radiation pneumonitis [Unknown]

NARRATIVE: CASE EVENT DATE: 20181214
